FAERS Safety Report 7269414 (Version 4)
Quarter: 2013Q1

REPORT INFORMATION
  Report Type: Report from Study
  Country: NL (occurrence: NL)
  Receive Date: 20100203
  Receipt Date: 20130319
  Transmission Date: 20140127
  Serious: Yes (Death, Other)
  Sender: FDA-Public Use
  Company Number: NL-ALEXION-A201000094

PATIENT
  Age: 67 None
  Sex: Female

DRUGS (8)
  1. SOLIRIS [Suspect]
     Indication: PAROXYSMAL NOCTURNAL HAEMOGLOBINURIA
     Dosage: 600 MG, QW
     Route: 042
     Dates: start: 20090913
  2. SOLIRIS [Suspect]
     Dosage: 900 MG, Q2W
     Route: 042
     Dates: start: 20091014, end: 20091125
  3. NADROPARIN [Concomitant]
     Indication: THROMBOSIS PROPHYLAXIS
     Dosage: 5700 IE, QD
     Route: 058
     Dates: start: 20090808
  4. FOLIC ACID [Concomitant]
     Indication: HAEMOLYSIS
     Dosage: 2.5 MG, UNK
     Route: 048
  5. PREDNISOLONE [Concomitant]
     Indication: RHEUMATOID ARTHRITIS
     Dosage: 2.5 MG, QD
     Route: 048
     Dates: start: 2005
  6. LORAZEPAM [Concomitant]
     Indication: INSOMNIA
     Dosage: 20 MG, QD
     Route: 048
  7. AUGMENTIN [Concomitant]
     Indication: PYREXIA
     Dosage: 625 UNK, QD
     Route: 048
  8. IMIPENEM [Concomitant]
     Indication: TOOTH EXTRACTION
     Dosage: UNK
     Route: 042
     Dates: start: 20091201

REACTIONS (2)
  - Escherichia sepsis [Fatal]
  - Acute myeloid leukaemia [Not Recovered/Not Resolved]
